FAERS Safety Report 6213870-1 (Version None)
Quarter: 2009Q2

REPORT INFORMATION
  Report Type: 
  Country: None (occurrence: None)
  Receive Date: 20090602
  Receipt Date: 20090602
  Transmission Date: 20091009
  Serious: Yes (Life-Threatening, Hospitalization)
  Sender: FDA-Public Use
  Company Number: None

PATIENT
  Sex: Female
  Weight: 73.9363 kg

DRUGS (16)
  1. SAVELLA [Suspect]
     Indication: FIBROMYALGIA
     Dosage: TITRATION PACK-ON 12.5MG DOSE TWICE DAILY PO
     Route: 048
     Dates: start: 20090518, end: 20090520
  2. ZEBETA [Concomitant]
  3. TIAZIMIDE [Concomitant]
  4. IBUPROFEN [Concomitant]
  5. M.V.I. [Concomitant]
  6. ATIVAN [Concomitant]
  7. ZANTAC [Concomitant]
  8. PREVACID [Concomitant]
  9. CELEBREX [Concomitant]
  10. VICODIN [Concomitant]
  11. LUNESTA [Concomitant]
  12. VERAMYST [Concomitant]
  13. SINGULAIR [Concomitant]
  14. DARVOCET [Concomitant]
  15. VIT. E [Concomitant]
  16. IBUPROFEN OTC [Concomitant]

REACTIONS (1)
  - DRUG HYPERSENSITIVITY [None]
